FAERS Safety Report 8923734 (Version 1)
Quarter: 2012Q4

REPORT INFORMATION
  Report Type: 
  Country: IT (occurrence: IT)
  Receive Date: 20121126
  Receipt Date: 20121126
  Transmission Date: 20130627
  Serious: Yes (Hospitalization)
  Sender: FDA-Public Use
  Company Number: IT-ROCHE-1159604

PATIENT
  Sex: Male

DRUGS (8)
  1. ROCEFIN [Suspect]
     Indication: FEBRILE NEUTROPENIA
     Route: 042
     Dates: start: 20121116, end: 20121122
  2. TEVAGRASTIM [Suspect]
     Indication: FEBRILE NEUTROPENIA
     Route: 058
     Dates: start: 20121116, end: 20121120
  3. ARANESP [Suspect]
     Indication: FEBRILE NEUTROPENIA
     Route: 058
     Dates: start: 20121116, end: 20121117
  4. CISPLATIN [Concomitant]
     Route: 065
  5. PANTOPRAZOLE [Concomitant]
     Route: 048
  6. VEPESID [Concomitant]
     Route: 065
  7. EMEND [Concomitant]
  8. DELTACORTENE [Concomitant]
     Route: 065

REACTIONS (1)
  - Anaemia haemolytic autoimmune [Unknown]
